FAERS Safety Report 4401207-X (Version None)
Quarter: 2004Q3

REPORT INFORMATION
  Report Type: 
  Country: None (occurrence: None)
  Receive Date: 20040907
  Receipt Date: 20031219
  Transmission Date: 20050211
  Serious: No
  Sender: FDA-Public Use
  Company Number: US-BRISTOL-MYERS SQUIBB COMPANY-12461786

PATIENT
  Sex: Female

DRUGS (6)
  1. COUMADIN [Suspect]
     Indication: CARDIAC DISORDER
     Route: 048
  2. SYNTHROID [Concomitant]
  3. ZETIA [Concomitant]
  4. ALTACE [Concomitant]
  5. ACTONEL [Concomitant]
  6. DIGOXIN [Concomitant]

REACTIONS (1)
  - INTERNATIONAL NORMALISED RATIO ABNORMAL [None]
